FAERS Safety Report 11992381 (Version 1)
Quarter: 2016Q1

REPORT INFORMATION
  Report Type: Spontaneous
  Country: US (occurrence: None)
  Receive Date: 20160202
  Receipt Date: 20160202
  Transmission Date: 20160526
  Serious: No
  Sender: FDA-Public Use
  Company Number: None

PATIENT
  Age: 58 Year
  Sex: Female
  Weight: 68.04 kg

DRUGS (9)
  1. VITAMIN D [Concomitant]
     Active Substance: CHOLECALCIFEROL
  2. VOLTAREN [Suspect]
     Active Substance: DICLOFENAC SODIUM
     Indication: EPICONDYLITIS
     Dosage: 2 GRAMS FOUR TIMES DAILY APPLIED TO A SURFACE, USUALLY THE SKIN
     Route: 061
     Dates: start: 20160118, end: 20160130
  3. PROGESTERONE. [Concomitant]
     Active Substance: PROGESTERONE
  4. ALEVE [Concomitant]
     Active Substance: NAPROXEN SODIUM
  5. LOW DOSE ASPIRIN [Concomitant]
     Active Substance: ASPIRIN
  6. MINIVELLE [Concomitant]
     Active Substance: ESTRADIOL
  7. SYNTHROID [Concomitant]
     Active Substance: LEVOTHYROXINE SODIUM
  8. OMEPRAZOLE. [Concomitant]
     Active Substance: OMEPRAZOLE
  9. SYSTAN EYE DROPS [Concomitant]

REACTIONS (1)
  - Flatulence [None]

NARRATIVE: CASE EVENT DATE: 20160124
